FAERS Safety Report 17891390 (Version 2)
Quarter: 2020Q2

REPORT INFORMATION
  Report Type: Spontaneous
  Country: FR (occurrence: FR)
  Receive Date: 20200612
  Receipt Date: 20200619
  Transmission Date: 20200714
  Serious: Yes (Other)
  Sender: FDA-Public Use
  Company Number: FR-ALEXION PHARMACEUTICALS INC.-A202008009

PATIENT

DRUGS (2)
  1. SOLIRIS [Suspect]
     Active Substance: ECULIZUMAB
     Indication: OFF LABEL USE
     Dosage: UNK
     Route: 065
  2. SOLIRIS [Suspect]
     Active Substance: ECULIZUMAB
     Indication: COVID-19 TREATMENT

REACTIONS (6)
  - Hyperbilirubinaemia [Unknown]
  - Condition aggravated [Unknown]
  - Hepatitis cholestatic [Unknown]
  - Off label use [Unknown]
  - COVID-19 [Unknown]
  - Blood alkaline phosphatase increased [Unknown]
